FAERS Safety Report 6262959-X (Version None)
Quarter: 2009Q3

REPORT INFORMATION
  Report Type: 
  Country: None (occurrence: None)
  Receive Date: 20090708
  Receipt Date: 20090630
  Transmission Date: 20100115
  Serious: Yes (Other)
  Sender: FDA-Public Use
  Company Number: CHNY2009GB02622

PATIENT
  Sex: Female

DRUGS (1)
  1. NICOTINE [Suspect]
     Indication: SMOKING CESSATION THERAPY
     Dosage: 3 BOXES OF 4 MG GUMS PER WEEK, BUCCAL
     Route: 002
     Dates: start: 20030101

REACTIONS (2)
  - DRUG DEPENDENCE [None]
  - INTENTIONAL DRUG MISUSE [None]
